FAERS Safety Report 6760970-3 (Version None)
Quarter: 2010Q2

REPORT INFORMATION
  Report Type: 
  Country: None (occurrence: None)
  Receive Date: 20100608
  Receipt Date: 20100601
  Transmission Date: 20101027
  Serious: Yes (Other)
  Sender: FDA-Public Use
  Company Number: B0659306A

PATIENT
  Age: 49 Year
  Sex: Male

DRUGS (1)
  1. CLINDAMYCIN [Suspect]

REACTIONS (1)
  - STEVENS-JOHNSON SYNDROME [None]
